FAERS Safety Report 8471072 (Version 2)
Quarter: 2012Q4

REPORT INFORMATION
  Report Type: 
  Country: US (occurrence: US)
  Receive Date: 20120322
  Receipt Date: 20121011
  Transmission Date: 20130627
  Serious: Yes (Hospitalization)
  Sender: FDA-Public Use
  Company Number: US-BAYER-2012-024481

PATIENT
  Age: 14 Year
  Sex: Female

DRUGS (2)
  1. YAZ [Suspect]
     Dosage: UNK
     Dates: start: 200408, end: 200612
  2. YASMIN [Suspect]
     Dosage: UNK
     Dates: start: 200408, end: 200612

REACTIONS (1)
  - Cholecystectomy [None]
